FAERS Safety Report 5326857-8 (Version None)
Quarter: 2007Q2

REPORT INFORMATION
  Report Type: 
  Country: None (occurrence: None)
  Receive Date: 20070511
  Receipt Date: 20070501
  Transmission Date: 20071010
  Serious: Yes (Death)
  Sender: FDA-Public Use
  Company Number: DAV-AE-NAP-07-001

PATIENT
  Sex: Female

DRUGS (1)
  1. NAPROXEN [Suspect]
     Indication: MYALGIA
     Dosage: 1100MG/DAY; 2ND TRIMESTER

REACTIONS (29)
  - ABDOMINAL DISTENSION [None]
  - BLOOD CREATININE INCREASED [None]
  - BLOOD POTASSIUM INCREASED [None]
  - BLOOD UREA INCREASED [None]
  - CAESAREAN SECTION [None]
  - CANDIDA SEPSIS [None]
  - COAGULATION DISORDER NEONATAL [None]
  - CONGENITAL RENAL DISORDER [None]
  - DISSEMINATED INTRAVASCULAR COAGULATION [None]
  - DRUG EXPOSURE DURING PREGNANCY [None]
  - FOETAL GROWTH RETARDATION [None]
  - FOETAL MOVEMENTS DECREASED [None]
  - ILEAL PERFORATION [None]
  - ILEITIS [None]
  - JOINT CONTRACTURE [None]
  - MOVEMENT DISORDER [None]
  - NEONATAL ANURIA [None]
  - NEONATAL CANDIDA INFECTION [None]
  - NEONATAL DISORDER [None]
  - NO THERAPEUTIC RESPONSE [None]
  - OEDEMA NEONATAL [None]
  - OLIGOHYDRAMNIOS [None]
  - PERITONEAL DIALYSIS [None]
  - PERITONEAL FLUID ANALYSIS ABNORMAL [None]
  - PLACENTAL DISORDER [None]
  - RENAL APLASIA [None]
  - RENIN INCREASED [None]
  - URINE OUTPUT DECREASED [None]
  - VOMITING NEONATAL [None]
